FAERS Safety Report 8504198-5 (Version None)
Quarter: 2012Q3

REPORT INFORMATION
  Report Type: 
  Country: None (occurrence: None)
  Receive Date: 20120711
  Receipt Date: 20120709
  Transmission Date: 20120928
  Serious: No
  Sender: FDA-Public Use
  Company Number: US-BAYER-2012-068595

PATIENT
  Age: 61 Year
  Sex: Male

DRUGS (7)
  1. METOPROLOL TARTRATE [Concomitant]
  2. MULTI-VITAMIN [Concomitant]
  3. LEVITRA [Suspect]
     Indication: ERECTILE DYSFUNCTION
     Dosage: 20 MG, PRN
     Route: 048
     Dates: start: 20090101, end: 20120624
  4. ASPIRIN [Concomitant]
  5. RAMIPRIL [Concomitant]
  6. TRICOR [Concomitant]
  7. CRESTOR [Concomitant]

REACTIONS (1)
  - ERECTILE DYSFUNCTION [None]
